FAERS Safety Report 19070134 (Version 1)
Quarter: 2021Q1

REPORT INFORMATION
  Report Type: Report from Study
  Country: BR (occurrence: BR)
  Receive Date: 20210329
  Receipt Date: 20210329
  Transmission Date: 20210420
  Serious: Yes (Hospitalization, Other)
  Sender: FDA-Public Use
  Company Number: NVSC2021BR064947

PATIENT
  Age: 64 Year
  Sex: Female

DRUGS (1)
  1. DIOVAN AMLO FIX [Suspect]
     Active Substance: AMLODIPINE\VALSARTAN
     Indication: PRODUCT USED FOR UNKNOWN INDICATION
     Dosage: 1 DF (STARTED MORE THAN 10 YEARS)
     Route: 065

REACTIONS (9)
  - Malaise [Unknown]
  - Cerebrovascular accident [Unknown]
  - Syncope [Unknown]
  - Ischaemia [Unknown]
  - Discomfort [Unknown]
  - Hemiplegia [Unknown]
  - Myocardial infarction [Unknown]
  - Motor neurone disease [Recovered/Resolved with Sequelae]
  - Gait disturbance [Unknown]

NARRATIVE: CASE EVENT DATE: 20140506
